FAERS Safety Report 7201774-7 (Version None)
Quarter: 2010Q4

REPORT INFORMATION
  Report Type: 
  Country: None (occurrence: None)
  Receive Date: 20101229
  Receipt Date: 20101223
  Transmission Date: 20110411
  Serious: Yes (Hospitalization)
  Sender: FDA-Public Use
  Company Number: DZ-ROCHE-750497

PATIENT
  Sex: Female

DRUGS (2)
  1. AVASTIN [Suspect]
     Indication: BREAST CANCER
     Dosage: DOSE: 1200 MG PER CURE (15MG/KG/21 DAYS), FREQUENCY: EVERY 21 DAYS
     Route: 042
     Dates: start: 20101128, end: 20101128
  2. CARBOPLATIN [Concomitant]
     Indication: BREAST CANCER

REACTIONS (2)
  - ANAEMIA [None]
  - GENERAL PHYSICAL HEALTH DETERIORATION [None]
